FAERS Safety Report 6090900-1 (Version None)
Quarter: 2009Q1

REPORT INFORMATION
  Report Type: 
  Country: None (occurrence: None)
  Receive Date: 20090220
  Receipt Date: 20090211
  Transmission Date: 20090719
  Serious: No
  Sender: FDA-Public Use
  Company Number: 2009-191354-NL

PATIENT
  Age: 75 Year
  Sex: Male

DRUGS (2)
  1. DEXAMETHASONE [Suspect]
     Indication: MULTIPLE MYELOMA
     Dosage: DF
  2. BORTEZOMIB [Suspect]
     Indication: MULTIPLE MYELOMA
     Dosage: DF

REACTIONS (1)
  - NEUTROPHIL COUNT DECREASED [None]
